FAERS Safety Report 6064779-8 (Version None)
Quarter: 2009Q1

REPORT INFORMATION
  Report Type: 
  Country: None (occurrence: None)
  Receive Date: 20090204
  Receipt Date: 20090123
  Transmission Date: 20090719
  Serious: Yes (Other)
  Sender: FDA-Public Use
  Company Number: JP-PFIZER INC-2009150357

PATIENT

DRUGS (3)
  1. ALDACTONE [Suspect]
     Indication: HYPERALDOSTERONISM
     Dosage: 12 MG, 1X/DAY
     Route: 048
     Dates: start: 20081115, end: 20090110
  2. ALDACTONE [Suspect]
     Indication: HORMONE LEVEL ABNORMAL
  3. MINOXIDIL [Suspect]
     Indication: CARDIOVASCULAR DISORDER
     Dosage: 0.02 G, 1X/DAY
     Route: 048
     Dates: start: 20081115, end: 20090110

REACTIONS (2)
  - BREAST DISCOMFORT [None]
  - CARBOHYDRATE ANTIGEN 125 INCREASED [None]
